FAERS Safety Report 7650026-X (Version None)
Quarter: 2011Q3

REPORT INFORMATION
  Report Type: 
  Country: None (occurrence: None)
  Receive Date: 20110802
  Receipt Date: 20110719
  Transmission Date: 20111222
  Serious: No
  Sender: FDA-Public Use
  Company Number: US-ELI_LILLY_AND_COMPANY-US201105008705

PATIENT
  Sex: Female
  Weight: 82.086 kg

DRUGS (9)
  1. COUMADIN [Concomitant]
  2. ULTRAM [Concomitant]
  3. ASPIRIN [Concomitant]
     Dosage: 325 MG, UNK
  4. FORTEO [Suspect]
     Indication: OSTEOPOROSIS
     Dosage: 20 UG, QD
     Dates: start: 20110225
  5. FORTEO [Suspect]
     Dosage: 20 UG, QD
     Route: 065
  6. FORTEO [Suspect]
     Dosage: 20 UG, QD
  7. FERROUS SULFATE TAB [Concomitant]
  8. CYCLOBENZAPRINE [Concomitant]
  9. PERCOCET [Concomitant]

REACTIONS (9)
  - ABDOMINAL DISCOMFORT [None]
  - NAUSEA [None]
  - NERVOUSNESS [None]
  - DEPRESSION [None]
  - DECREASED APPETITE [None]
  - DYSGEUSIA [None]
  - DRY MOUTH [None]
  - FEELING ABNORMAL [None]
  - CRYING [None]
